FAERS Safety Report 16342917 (Version 1)
Quarter: 2019Q2

REPORT INFORMATION
  Report Type: Spontaneous
  Country: US (occurrence: US)
  Receive Date: 20190417
  Receipt Date: 20190417
  Transmission Date: 20190711
  Serious: No
  Sender: FDA-Public Use
  Company Number: None

PATIENT
  Age: 83 Year
  Sex: Male

DRUGS (13)
  1. URSODIOL. [Concomitant]
     Active Substance: URSODIOL
  2. ATENOLOL. [Concomitant]
     Active Substance: ATENOLOL
  3. LISINOPRIL. [Concomitant]
     Active Substance: LISINOPRIL
  4. TRADJENTA [Concomitant]
     Active Substance: LINAGLIPTIN
  5. VITAMIN D3 [Concomitant]
     Active Substance: CHOLECALCIFEROL
  6. METFORMIN [Concomitant]
     Active Substance: METFORMIN HYDROCHLORIDE
  7. OCALIVA [Suspect]
     Active Substance: OBETICHOLIC ACID
     Indication: PRIMARY BILIARY CHOLANGITIS
     Route: 048
     Dates: start: 20170204
  8. PLAVIX [Concomitant]
     Active Substance: CLOPIDOGREL BISULFATE
  9. XARELTO [Concomitant]
     Active Substance: RIVAROXABAN
  10. FLOMAX [Concomitant]
     Active Substance: TAMSULOSIN HYDROCHLORIDE
  11. CARDIZEM CD [Concomitant]
     Active Substance: DILTIAZEM HYDROCHLORIDE
  12. SLO-NIACIN [Concomitant]
     Active Substance: NIACIN
  13. ATORVASTATIN [Concomitant]
     Active Substance: ATORVASTATIN

REACTIONS (2)
  - Oral pain [None]
  - Discomfort [None]

NARRATIVE: CASE EVENT DATE: 20190326
